FAERS Safety Report 9884154 (Version 2)
Quarter: 2014Q1

REPORT INFORMATION
  Report Type: Spontaneous
  Country: US (occurrence: US)
  Receive Date: 20140210
  Receipt Date: 20140210
  Transmission Date: 20141002
  Serious: No
  Sender: FDA-Public Use
  Company Number: US-ALLERGAN-1315596US

PATIENT
  Sex: Female

DRUGS (4)
  1. BOTOX COSMETIC [Suspect]
     Indication: SKIN WRINKLING
     Dosage: 4 UNITS, SINGLE
     Route: 030
     Dates: start: 20130929, end: 20130929
  2. PROGESTERONE [Concomitant]
     Indication: PRODUCT USED FOR UNKNOWN INDICATION
  3. FEMRING [Concomitant]
     Indication: PRODUCT USED FOR UNKNOWN INDICATION
  4. PROPRANOLOL [Concomitant]
     Indication: PRODUCT USED FOR UNKNOWN INDICATION

REACTIONS (3)
  - Facial asymmetry [Recovered/Resolved]
  - Hypoaesthesia oral [Recovered/Resolved]
  - Hypoaesthesia [Recovered/Resolved]
